FAERS Safety Report 8577555-9 (Version None)
Quarter: 2012Q3

REPORT INFORMATION
  Report Type: 
  Country: None (occurrence: None)
  Receive Date: 20120807
  Receipt Date: 20120731
  Transmission Date: 20120928
  Serious: No
  Sender: FDA-Public Use
  Company Number: US-B.I. PHARMACEUTICALS,INC./RIDGEFIELD-2012-BP-17386BP

PATIENT
  Sex: Female
  Weight: 71 kg

DRUGS (7)
  1. LEXAPRO [Concomitant]
     Indication: DEPRESSION
  2. DIOVAN [Concomitant]
     Indication: HYPERTENSION
     Route: 048
  3. SPIRIVA [Suspect]
     Route: 048
     Dates: start: 20120731, end: 20120731
  4. POTASSIUM [Concomitant]
  5. SIMVASTATIN [Concomitant]
     Indication: BLOOD CHOLESTEROL INCREASED
  6. SPIRIVA [Suspect]
     Indication: CHRONIC OBSTRUCTIVE PULMONARY DISEASE
     Dosage: 18 MCG
     Route: 055
     Dates: start: 20120601
  7. SPIRONLACTONE [Concomitant]
     Indication: HYPERTENSION

REACTIONS (1)
  - INCORRECT ROUTE OF DRUG ADMINISTRATION [None]
